FAERS Safety Report 9425947 (Version 1)
Quarter: 2013Q3

REPORT INFORMATION
  Report Type: Spontaneous
  Country: US (occurrence: US)
  Receive Date: 20130729
  Receipt Date: 20130729
  Transmission Date: 20140515
  Serious: No
  Sender: FDA-Public Use
  Company Number: US-009507513-1307USA011378

PATIENT
  Age: 53 Year
  Sex: Male

DRUGS (3)
  1. VICTRELIS [Suspect]
     Dosage: 4 CAPSULE, TID
     Route: 048
     Dates: start: 201304
  2. REBETOL [Suspect]
     Dosage: UNK
     Route: 048
  3. PEGINTRON [Suspect]
     Dosage: 150 MICROGRAM, QW
     Route: 058

REACTIONS (4)
  - Diarrhoea [Not Recovered/Not Resolved]
  - Nausea [Not Recovered/Not Resolved]
  - Weight decreased [Not Recovered/Not Resolved]
  - Dysgeusia [Not Recovered/Not Resolved]
